FAERS Safety Report 24933816 (Version 1)
Quarter: 2025Q1

REPORT INFORMATION
  Report Type: Report from Study
  Country: CA (occurrence: CA)
  Receive Date: 20250206
  Receipt Date: 20250206
  Transmission Date: 20250409
  Serious: Yes (Death, Other)
  Sender: EXELIXIS
  Company Number: CA-IPSEN Group, Research and Development-2024-03657

PATIENT
  Sex: Male

DRUGS (6)
  1. CABOMETYX [Suspect]
     Active Substance: CABOZANTINIB S-MALATE
     Indication: Renal cell carcinoma
     Dosage: 60 MG, QD
     Route: 048
     Dates: start: 20230601, end: 20231106
  2. PANTOPRAZOLE SODIUM [Concomitant]
     Active Substance: PANTOPRAZOLE SODIUM
  3. BISOPROLOL [Concomitant]
     Active Substance: BISOPROLOL
  4. SITAGLIPTIN [Concomitant]
     Active Substance: SITAGLIPTIN
  5. ROSUVASTATIN [Concomitant]
     Active Substance: ROSUVASTATIN
  6. PROCHLORPERAZINE [Concomitant]
     Active Substance: PROCHLORPERAZINE

REACTIONS (1)
  - Renal cell carcinoma [Fatal]
